FAERS Safety Report 8531229-9 (Version None)
Quarter: 2012Q3

REPORT INFORMATION
  Report Type: 
  Country: None (occurrence: None)
  Receive Date: 20120723
  Receipt Date: 20120709
  Transmission Date: 20120928
  Serious: Yes (Hospitalization, Other)
  Sender: FDA-Public Use
  Company Number: US-ELI_LILLY_AND_COMPANY-US201207003340

PATIENT
  Sex: Female

DRUGS (5)
  1. VANCOMYCIN [Concomitant]
  2. CYMBALTA [Suspect]
     Dosage: 60 MG, QD
     Dates: start: 20110701
  3. FLEXERIL [Concomitant]
     Dosage: 1 DF, PRN
  4. VICODIN [Concomitant]
     Dosage: 1 DF, PRN
  5. CIPROFLOXACIN [Concomitant]
     Dosage: 500 MG, BID
     Dates: end: 20120701

REACTIONS (10)
  - PALPITATIONS [None]
  - PARAESTHESIA [None]
  - DIZZINESS [None]
  - SURGERY [None]
  - DRUG INTERACTION [None]
  - MOTION SICKNESS [None]
  - HEADACHE [None]
  - ORTHOSTATIC HYPOTENSION [None]
  - SLEEP DISORDER [None]
  - HYPERHIDROSIS [None]
